FAERS Safety Report 8926373 (Version 1)
Quarter: 2012Q4

REPORT INFORMATION
  Report Type: Report from Study
  Country: DE (occurrence: DE)
  Receive Date: 20121127
  Receipt Date: 20121127
  Transmission Date: 20130627
  Serious: Yes (Hospitalization)
  Sender: FDA-Public Use
  Company Number: DE-GLAXOSMITHKLINE-B0836623A

PATIENT
  Age: 27 Year
  Sex: Female
  Weight: 56 kg

DRUGS (9)
  1. LAPATINIB [Suspect]
     Indication: BREAST CANCER
     Dosage: 500MG Per day
     Route: 048
     Dates: start: 20120914
  2. MYOCET [Suspect]
     Indication: BREAST CANCER
     Dosage: 32MGM Weekly
     Route: 042
     Dates: start: 20120914
  3. TAXOL [Suspect]
     Indication: BREAST CANCER
     Dosage: 130MG Weekly
     Route: 042
     Dates: start: 20120914
  4. HERCEPTIN [Suspect]
     Indication: BREAST CANCER
     Dosage: 469MG Every 3 weeks
     Route: 042
     Dates: start: 20120913
  5. BUDESONIDE INHALER [Concomitant]
  6. PANTOPRAZOLE [Concomitant]
  7. IMODIUM [Concomitant]
     Dosage: 2MG As required
     Route: 048
     Dates: start: 20120914
  8. IBUPROFEN [Concomitant]
     Dates: start: 20120914
  9. PARACETAMOL [Concomitant]
     Dates: start: 20120914

REACTIONS (2)
  - Pyrexia [Recovering/Resolving]
  - Pyrexia [Recovering/Resolving]
